FAERS Safety Report 4639219-3 (Version None)
Quarter: 2005Q2

REPORT INFORMATION
  Report Type: 
  Country: None (occurrence: None)
  Receive Date: 20050418
  Receipt Date: 20050412
  Transmission Date: 20051028
  Serious: Yes (Death)
  Sender: FDA-Public Use
  Company Number: A001-002-006459

PATIENT
  Age: 82 Year
  Sex: Male

DRUGS (3)
  1. ARICEPT [Suspect]
     Dosage: 5 MG, 1 IN 1 D, ORAL
     Route: 048
     Dates: start: 20041001
  2. SINEMET [Concomitant]
  3. COMTAN [Concomitant]

REACTIONS (1)
  - SYNCOPE [None]
